FAERS Safety Report 15962522 (Version 1)
Quarter: 2019Q1

REPORT INFORMATION
  Report Type: Spontaneous
  Country: FR (occurrence: FR)
  Receive Date: 20190214
  Receipt Date: 20190214
  Transmission Date: 20190417
  Serious: Yes (Life-Threatening)
  Sender: FDA-Public Use
  Company Number: FR-PFIZER INC-2019063899

PATIENT
  Age: 52 Year
  Sex: Female

DRUGS (7)
  1. TERALITHE [Suspect]
     Active Substance: LITHIUM CARBONATE
     Route: 048
     Dates: start: 20190114, end: 20190114
  2. QUETIAPINE. [Suspect]
     Active Substance: QUETIAPINE
     Dosage: 7200 MG, SINGLE
     Route: 048
     Dates: start: 20190114, end: 20190114
  3. SERTRALINE HCL [Suspect]
     Active Substance: SERTRALINE HYDROCHLORIDE
     Dosage: 350 MG, SINGLE
     Route: 048
     Dates: start: 20190114, end: 20190114
  4. THERALENE [Suspect]
     Active Substance: TRIMEPRAZINE
     Dosage: 125 MG, SINGLE (25 DF)
     Route: 048
     Dates: start: 20190114, end: 20190114
  5. PARACETAMOL [Suspect]
     Active Substance: ACETAMINOPHEN
     Dosage: 7 G, SINGLE
     Route: 048
     Dates: start: 20190114, end: 20190114
  6. ZOPICLONE [Suspect]
     Active Substance: ZOPICLONE
     Dosage: 202.5 MG, SINGLE
     Route: 048
     Dates: start: 20190114, end: 20190114
  7. SERESTA [Suspect]
     Active Substance: OXAZEPAM
     Dosage: 1000 MG, SINGLE (20 DF)
     Route: 048
     Dates: start: 20190114, end: 20190114

REACTIONS (6)
  - Poisoning deliberate [Recovered/Resolved]
  - Acute kidney injury [Recovered/Resolved]
  - Coma [Recovering/Resolving]
  - Electrocardiogram QT prolonged [Recovered/Resolved]
  - Suicide attempt [Unknown]
  - Pneumonia aspiration [Recovering/Resolving]

NARRATIVE: CASE EVENT DATE: 20190114
